FAERS Safety Report 16353216 (Version 1)
Quarter: 2019Q2

REPORT INFORMATION
  Report Type: Spontaneous
  Country: GB (occurrence: GB)
  Receive Date: 20190524
  Receipt Date: 20190524
  Transmission Date: 20190711
  Serious: Yes (Other)
  Sender: FDA-Public Use
  Company Number: GB-MYLANLABS-2019M1019253

PATIENT
  Age: 58 Year
  Sex: Female

DRUGS (1)
  1. ELLESTE DUET CONTI TABLETS [Suspect]
     Active Substance: ESTRADIOL\NORETHINDRONE ACETATE
     Indication: HORMONE REPLACEMENT THERAPY
     Dosage: 1 UNK, QD
     Route: 065

REACTIONS (1)
  - Gastric bypass [Unknown]
